FAERS Safety Report 18542218 (Version 2)
Quarter: 2020Q4

REPORT INFORMATION
  Report Type: Spontaneous
  Country: US (occurrence: US)
  Receive Date: 20201124
  Receipt Date: 20201215
  Transmission Date: 20210114
  Serious: Yes (Death, Other)
  Sender: FDA-Public Use
  Company Number: US-TEVA-2020-US-1851390

PATIENT
  Age: 66 Year
  Sex: Female

DRUGS (5)
  1. CARBOPLATIN. [Suspect]
     Active Substance: CARBOPLATIN
     Indication: ENDOMETRIAL ADENOCARCINOMA
     Dosage: INTERVAL: EVERY 3 WEEKS
     Route: 065
     Dates: start: 201809
  2. PACLITAXEL. [Suspect]
     Active Substance: PACLITAXEL
     Indication: ENDOMETRIAL ADENOCARCINOMA
     Route: 065
  3. PERTUZUMAB. [Suspect]
     Active Substance: PERTUZUMAB
     Indication: ENDOMETRIAL ADENOCARCINOMA
     Route: 065
     Dates: start: 201901
  4. APIXABAN [Concomitant]
     Active Substance: APIXABAN
     Indication: VENOUS THROMBOSIS
     Route: 065
     Dates: end: 201908
  5. TRASTUZUMAB. [Suspect]
     Active Substance: TRASTUZUMAB
     Indication: ENDOMETRIAL ADENOCARCINOMA
     Dosage: INTERVAL: EVERY 3 WEEKS
     Route: 065
     Dates: start: 201809

REACTIONS (5)
  - Dysphonia [Unknown]
  - Drug hypersensitivity [Unknown]
  - Cough [Unknown]
  - Paralysis [Unknown]
  - Haemoptysis [Unknown]

NARRATIVE: CASE EVENT DATE: 2019
